FAERS Safety Report 18508042 (Version 1)
Quarter: 2020Q4

REPORT INFORMATION
  Report Type: Report from Study
  Country: LV (occurrence: LV)
  Receive Date: 20201116
  Receipt Date: 20201116
  Transmission Date: 20210114
  Serious: Yes (Other)
  Sender: FDA-Public Use
  Company Number: LV-BAUSCH-BL-2020-032405

PATIENT
  Age: 53 Year
  Sex: Male

DRUGS (20)
  1. DICLOFENAC [Suspect]
     Active Substance: DICLOFENAC
     Indication: PYREXIA
     Route: 065
     Dates: end: 20191206
  2. LINEZOLID. [Concomitant]
     Active Substance: LINEZOLID
     Indication: PULMONARY TUBERCULOSIS
     Route: 048
     Dates: start: 20191022, end: 20191205
  3. TERIZIDONE [Concomitant]
     Active Substance: TERIZIDONE
     Route: 048
     Dates: start: 20191022, end: 20191205
  4. METRONIDAZOLUM [Concomitant]
     Indication: PRODUCT USED FOR UNKNOWN INDICATION
     Route: 048
     Dates: start: 20191106, end: 20191215
  5. NEURORUBIN [Concomitant]
     Indication: PROPHYLAXIS
     Route: 048
     Dates: start: 20191022, end: 20200210
  6. BEDAQUILINE [Concomitant]
     Active Substance: BEDAQUILINE
     Indication: PULMONARY TUBERCULOSIS
     Route: 048
     Dates: start: 20191224, end: 20200116
  7. OMEPRAZOL [Concomitant]
     Active Substance: OMEPRAZOLE
     Indication: PROPHYLAXIS
     Route: 048
     Dates: start: 20191023
  8. ENTEROL [Concomitant]
     Indication: PRODUCT USED FOR UNKNOWN INDICATION
     Route: 048
     Dates: start: 20191103, end: 20200127
  9. LEVOFLOXACIN. [Concomitant]
     Active Substance: LEVOFLOXACIN
     Route: 048
     Dates: start: 20200119, end: 20200904
  10. CLOFAZIMINE [Concomitant]
     Active Substance: CLOFAZIMINE
     Indication: PULMONARY TUBERCULOSIS
     Route: 048
     Dates: start: 20191022, end: 20200904
  11. DOMPERIDONUM [Concomitant]
     Indication: PROPHYLAXIS
     Route: 048
     Dates: start: 20191022, end: 20200210
  12. TAMSULOSINUM [Concomitant]
     Indication: PRODUCT USED FOR UNKNOWN INDICATION
     Route: 048
     Dates: start: 20191219
  13. DELAMANID [Suspect]
     Active Substance: DELAMANID
     Indication: PULMONARY TUBERCULOSIS
     Route: 048
     Dates: start: 20191023, end: 20200904
  14. TERIZIDONE [Concomitant]
     Active Substance: TERIZIDONE
     Route: 048
     Dates: start: 20191219, end: 20200116
  15. LEVOFLOXACIN. [Concomitant]
     Active Substance: LEVOFLOXACIN
     Route: 048
     Dates: start: 20191207, end: 20191218
  16. LEVOFLOXACIN. [Concomitant]
     Active Substance: LEVOFLOXACIN
     Indication: PULMONARY TUBERCULOSIS
     Route: 048
     Dates: start: 20191022, end: 20191205
  17. DICLOFENAC [Suspect]
     Active Substance: DICLOFENAC
     Route: 065
     Dates: start: 20191219
  18. RINGERS SOLUTION [Concomitant]
     Active Substance: CALCIUM CHLORIDE\POTASSIUM CHLORIDE\SODIUM CHLORIDE
     Indication: PRODUCT USED FOR UNKNOWN INDICATION
     Route: 042
     Dates: start: 20191206, end: 20191215
  19. TERIZIDONE [Concomitant]
     Active Substance: TERIZIDONE
     Indication: PULMONARY TUBERCULOSIS
     Route: 048
     Dates: start: 20191207, end: 20191218
  20. BEDAQUILINE [Concomitant]
     Active Substance: BEDAQUILINE
     Route: 048
     Dates: start: 20200108, end: 20200904

REACTIONS (3)
  - Paradoxical drug reaction [Recovered/Resolved]
  - Electrocardiogram QT prolonged [Recovered/Resolved]
  - Acute kidney injury [Recovered/Resolved]

NARRATIVE: CASE EVENT DATE: 20191103
